FAERS Safety Report 16282041 (Version 1)
Quarter: 2019Q2

REPORT INFORMATION
  Report Type: Report from Study
  Country: IT (occurrence: IT)
  Receive Date: 20190507
  Receipt Date: 20190507
  Transmission Date: 20190711
  Serious: Yes (Hospitalization)
  Sender: FDA-Public Use
  Company Number: IT-GLAXOSMITHKLINE-IT2019077362

PATIENT
  Age: 49 Year
  Sex: Male

DRUGS (5)
  1. FLUTICASONE PROPIONATE. [Suspect]
     Active Substance: FLUTICASONE PROPIONATE
     Indication: RHINITIS HYPERTROPHIC
     Dosage: 500 ?G, QD
     Route: 055
     Dates: start: 20190215, end: 20190415
  2. RUPAFIN [Suspect]
     Active Substance: RUPATADINE FUMARATE
     Indication: RHINITIS ALLERGIC
     Dosage: 10 MG, QD
     Route: 048
     Dates: start: 20190215, end: 20190415
  3. TANTUM VERDE (BENZYDAMINE HYDROCHLORIDE) [Suspect]
     Active Substance: BENZYDAMINE HYDROCHLORIDE
     Indication: OROPHARYNGEAL PAIN
     Dosage: IN TOTAL
     Route: 048
     Dates: start: 20190413, end: 20190414
  4. AIRCORT (BUDESONIDE) [Suspect]
     Active Substance: BUDESONIDE
     Indication: RHINITIS HYPERTROPHIC
     Dosage: 200 ?G, QD
     Route: 055
     Dates: start: 20190215, end: 20190415
  5. BENTELAN [Suspect]
     Active Substance: BETAMETHASONE SODIUM PHOSPHATE
     Indication: RHINITIS ALLERGIC
     Dosage: 1 MG, QD
     Route: 048
     Dates: start: 20190215, end: 20190415

REACTIONS (2)
  - Pharyngeal oedema [Recovered/Resolved]
  - Urticaria [Recovered/Resolved]

NARRATIVE: CASE EVENT DATE: 20190415
